FAERS Safety Report 8241173-2 (Version None)
Quarter: 2012Q1

REPORT INFORMATION
  Report Type: 
  Country: None (occurrence: None)
  Receive Date: 20120328
  Receipt Date: 20120322
  Transmission Date: 20120608
  Serious: Yes (Hospitalization, Other)
  Sender: FDA-Public Use
  Company Number: US-BAYER-200941035NA

PATIENT
  Age: 28 Year
  Sex: Female
  Weight: 78.636 kg

DRUGS (6)
  1. CABERGOLINE [Concomitant]
     Dosage: 0.5 MG, UNK
     Dates: start: 20070912
  2. YASMIN [Suspect]
     Dosage: UNK
     Dates: start: 20070911
  3. METFORMIN HCL [Concomitant]
     Indication: POLYCYSTIC OVARIES
     Dates: start: 20060301
  4. GLUCOPHAGE [Concomitant]
     Indication: POLYCYSTIC OVARIES
     Dates: start: 20070601
  5. YASMIN [Suspect]
     Route: 048
     Dates: start: 20060831, end: 20071110
  6. SPIRONOLACTONE [Concomitant]
     Indication: POLYCYSTIC OVARIES
     Dates: start: 20080601

REACTIONS (4)
  - OEDEMA PERIPHERAL [None]
  - ERYTHEMA [None]
  - DEEP VEIN THROMBOSIS [None]
  - PAIN IN EXTREMITY [None]
